FAERS Safety Report 7162643-4 (Version None)
Quarter: 2010Q4

REPORT INFORMATION
  Report Type: 
  Country: None (occurrence: None)
  Receive Date: 20101215
  Receipt Date: 20101210
  Transmission Date: 20110411
  Serious: Yes (Other)
  Sender: FDA-Public Use
  Company Number: NZ-PFIZER INC-2010157240

PATIENT
  Age: 61 Year
  Sex: Female

DRUGS (2)
  1. CHANTIX [Suspect]
     Dosage: UNK
     Dates: start: 20100901, end: 20100910
  2. LIPITOR [Concomitant]
     Indication: BLOOD CHOLESTEROL
     Dosage: 20 MG, 1X/DAY

REACTIONS (5)
  - DEPRESSION [None]
  - INSOMNIA [None]
  - NAUSEA [None]
  - SUICIDAL IDEATION [None]
  - THROAT TIGHTNESS [None]
